FAERS Safety Report 6251783-X (Version None)
Quarter: 2009Q2

REPORT INFORMATION
  Report Type: 
  Country: None (occurrence: None)
  Receive Date: 20090630
  Receipt Date: 20090622
  Transmission Date: 20091009
  Serious: Yes (Hospitalization)
  Sender: FDA-Public Use
  Company Number: US-AMGEN-QUU352685

PATIENT
  Sex: Male

DRUGS (12)
  1. ARANESP [Suspect]
     Indication: DRUG USE FOR UNKNOWN INDICATION
  2. HYDRALAZINE HCL [Concomitant]
  3. DEMADEX [Concomitant]
  4. PROTONIX [Concomitant]
  5. DIOVAN [Concomitant]
  6. COREG [Concomitant]
  7. AVODART [Concomitant]
  8. GLUCOTROL [Concomitant]
  9. ZAROXOLYN [Concomitant]
  10. REGULAR INSULIN [Concomitant]
  11. COUMADIN [Concomitant]
  12. PLAVIX [Concomitant]

REACTIONS (1)
  - GASTROINTESTINAL HAEMORRHAGE [None]
